FAERS Safety Report 4299065-X (Version None)
Quarter: 2004Q1

REPORT INFORMATION
  Report Type: 
  Country: None (occurrence: None)
  Receive Date: 20040217
  Receipt Date: 20040205
  Transmission Date: 20041129
  Serious: Yes (Hospitalization)
  Sender: FDA-Public Use
  Company Number: TEST00203000816

PATIENT
  Age: 73 Year
  Sex: Male

DRUGS (20)
  1. ANDROGEL [Suspect]
     Indication: HYPOGONADISM MALE
     Dosage: 5 G DAILY TD, 5 G DAILY TD
     Route: 062
     Dates: start: 20021106, end: 20030203
  2. ANDROGEL [Suspect]
     Indication: HYPOGONADISM MALE
     Dosage: 5 G DAILY TD, 5 G DAILY TD
     Route: 062
     Dates: start: 20030210
  3. LOPRESSOR [Concomitant]
  4. GLUCOPHAGE [Concomitant]
  5. ACTOS [Concomitant]
  6. ZOCOR [Concomitant]
  7. PRINIVIL [Concomitant]
  8. SINGULAIR [Concomitant]
  9. DIGOXIN [Concomitant]
  10. LASIX [Concomitant]
  11. ATENOLOL [Concomitant]
  12. WARFARIN SODIUM [Concomitant]
  13. GLUCOTROL XL [Concomitant]
  14. THEOPHYLLINE [Concomitant]
  15. METOLAZONE [Concomitant]
  16. HUMALOG [Concomitant]
  17. ATROVENT [Concomitant]
  18. SEREVENT [Concomitant]
  19. ALBUTEROL [Concomitant]
  20. COMBIVENT [Concomitant]

REACTIONS (4)
  - CARDIAC FAILURE CONGESTIVE [None]
  - ISCHAEMIC CARDIOMYOPATHY [None]
  - LEFT VENTRICULAR FAILURE [None]
  - RIGHT VENTRICULAR FAILURE [None]
